FAERS Safety Report 6101340-0 (Version None)
Quarter: 2009Q1

REPORT INFORMATION
  Report Type: 
  Country: None (occurrence: None)
  Receive Date: 20090227
  Receipt Date: 20090218
  Transmission Date: 20090719
  Serious: Yes (Hospitalization, Other)
  Sender: FDA-Public Use
  Company Number: 56901

PATIENT
  Age: 60 Year
  Sex: Male

DRUGS (2)
  1. BLEOMYCIN SULFATE [Suspect]
     Indication: BURKITT'S LYMPHOMA
  2. ADRIAMYCIN PFS [Suspect]
     Indication: BURKITT'S LYMPHOMA

REACTIONS (2)
  - ACUTE MYELOMONOCYTIC LEUKAEMIA [None]
  - MYELODYSPLASTIC SYNDROME [None]
